FAERS Safety Report 9941643 (Version 1)
Quarter: 2014Q1

REPORT INFORMATION
  Report Type: Report from Study
  Country: US (occurrence: US)
  Receive Date: 20140303
  Receipt Date: 20140303
  Transmission Date: 20141002
  Serious: No
  Sender: FDA-Public Use
  Company Number: US-ABBVIE-13P-163-1040195-00

PATIENT
  Sex: Female
  Weight: 63.56 kg

DRUGS (9)
  1. HUMIRA [Suspect]
     Indication: CROHN^S DISEASE
     Dates: start: 201208, end: 20130121
  2. PROZAC [Concomitant]
     Indication: DEPRESSION
  3. TENORMIN [Concomitant]
     Indication: MITRAL VALVE PROLAPSE
  4. ENTOCORT [Concomitant]
     Indication: CROHN^S DISEASE
  5. GABAPENTIN [Concomitant]
     Indication: FIBROMYALGIA
  6. ATIVAN [Concomitant]
     Indication: ANXIETY
  7. ZANAFLEX [Concomitant]
     Indication: MYALGIA
     Dosage: PRN
  8. TYLENOL [Concomitant]
     Indication: PRODUCT USED FOR UNKNOWN INDICATION
  9. BENADRYL [Concomitant]
     Indication: INSOMNIA

REACTIONS (5)
  - Incorrect dose administered [Recovered/Resolved]
  - Injection site pain [Not Recovered/Not Resolved]
  - Injection site erythema [Not Recovered/Not Resolved]
  - Device malfunction [Recovered/Resolved]
  - Drug dose omission [Unknown]
